FAERS Safety Report 16095221 (Version 1)
Quarter: 2019Q1

REPORT INFORMATION
  Report Type: Spontaneous
  Country: US (occurrence: US)
  Receive Date: 20190320
  Receipt Date: 20190320
  Transmission Date: 20190418
  Serious: No
  Sender: FDA-Public Use
  Company Number: US-CELGENEUS-USA-20190305016

PATIENT
  Sex: Female

DRUGS (2)
  1. THALOMID [Suspect]
     Active Substance: THALIDOMIDE
     Indication: OFF LABEL USE
     Dosage: 100 MILLIGRAM
     Route: 048
     Dates: start: 201903
  2. THALOMID [Suspect]
     Active Substance: THALIDOMIDE
     Indication: NEURODERMATITIS
     Dosage: 50 MILLIGRAM
     Route: 048
     Dates: start: 201808

REACTIONS (1)
  - Blood count abnormal [Unknown]
